FAERS Safety Report 22158593 (Version 1)
Quarter: 2023Q1

REPORT INFORMATION
  Report Type: Spontaneous
  Country: None (occurrence: FR)
  Receive Date: 20230331
  Receipt Date: 20230331
  Transmission Date: 20230417
  Serious: Yes (Other)
  Sender: FDA-Public Use
  Company Number: FR-VALIDUS PHARMACEUTICALS LLC-FR-VDP-2023-016020

PATIENT

DRUGS (7)
  1. CEFOTAXIME SODIUM [Suspect]
     Active Substance: CEFOTAXIME SODIUM
     Indication: Infection
     Dosage: 3 G, QD
     Route: 042
  2. PROPOFOL [Suspect]
     Active Substance: PROPOFOL
     Indication: Induction of anaesthesia
     Dosage: 120 MG, QH
     Route: 042
     Dates: start: 20221016, end: 20221019
  3. TRIMEBUTINE MALEATE [Suspect]
     Active Substance: TRIMEBUTINE MALEATE
     Indication: Gastrointestinal motility disorder
     Dosage: 300 MG, QD
     Route: 042
     Dates: start: 20221018
  4. ULTIVA [Suspect]
     Active Substance: REMIFENTANIL HYDROCHLORIDE
     Indication: Analgesic therapy
     Dosage: 1 MG, TOTAL
     Route: 042
  5. DEXMEDETOMIDINE HYDROCHLORIDE [Suspect]
     Active Substance: DEXMEDETOMIDINE HYDROCHLORIDE
     Indication: Sedation
     Dosage: 130 MICROGRAM, QH
     Route: 042
     Dates: start: 20221014, end: 20221025
  6. EUPANTOL [Suspect]
     Active Substance: PANTOPRAZOLE SODIUM
     Indication: Gastrooesophageal reflux disease
     Dosage: 40 MG, QD
     Route: 042
     Dates: start: 20221014, end: 20221029
  7. PHLOROGLUCINOL\1,3,5-TRIMETHOXYBENZENE [Suspect]
     Active Substance: PHLOROGLUCINOL\1,3,5-TRIMETHOXYBENZENE
     Indication: Gastrointestinal motility disorder
     Dosage: 240 MG, QD
     Route: 042
     Dates: start: 20221018, end: 20221023

REACTIONS (2)
  - Dermatitis exfoliative generalised [Recovered/Resolved]
  - Pruritus [Recovered/Resolved]

NARRATIVE: CASE EVENT DATE: 20221019
